FAERS Safety Report 15328398 (Version 7)
Quarter: 2022Q2

REPORT INFORMATION
  Report Type: Report from Study
  Country: US (occurrence: US)
  Receive Date: 20180829
  Receipt Date: 20220428
  Transmission Date: 20220721
  Serious: Yes (Other)
  Sender: FDA-Public Use
  Company Number: US-NOVARTISPH-PHEH2018US035955

PATIENT
  Sex: Female

DRUGS (4)
  1. AFINITOR [Suspect]
     Active Substance: EVEROLIMUS
     Indication: Tuberous sclerosis complex
     Dosage: 7.5 MG, QD
     Route: 048
     Dates: start: 20120504
  2. AFINITOR [Suspect]
     Active Substance: EVEROLIMUS
     Indication: Angiomyolipoma
     Dosage: 7.5 MG
     Route: 048
     Dates: start: 20120504, end: 202103
  3. EVEROLIMUS [Suspect]
     Active Substance: EVEROLIMUS
     Indication: Astrocytoma, low grade
     Dosage: 7.5 MG, QD
     Route: 048
     Dates: start: 202103
  4. EVEROLIMUS [Suspect]
     Active Substance: EVEROLIMUS
     Indication: Angiomyolipoma

REACTIONS (8)
  - Seizure [Unknown]
  - Blood pH increased [Unknown]
  - Blood urine present [Not Recovered/Not Resolved]
  - Disorientation [Unknown]
  - Dehydration [Unknown]
  - Dizziness [Unknown]
  - Headache [Unknown]
  - Renal mass [Unknown]

NARRATIVE: CASE EVENT DATE: 20140101
